FAERS Safety Report 24964557 (Version 1)
Quarter: 2025Q1

REPORT INFORMATION
  Report Type: Report from Study
  Country: IN (occurrence: IN)
  Receive Date: 20250213
  Receipt Date: 20250213
  Transmission Date: 20250408
  Serious: Yes (Death)
  Sender: CIPLA
  Company Number: IN-CIPLA LTD.-2025IN01820

PATIENT

DRUGS (1)
  1. ACYCLOVIR [Suspect]
     Active Substance: ACYCLOVIR
     Indication: Varicella
     Route: 065

REACTIONS (1)
  - Disease progression [Fatal]
